FAERS Safety Report 5443075-3 (Version None)
Quarter: 2007Q3

REPORT INFORMATION
  Report Type: 
  Country: None (occurrence: None)
  Receive Date: 20070828
  Receipt Date: 20070813
  Transmission Date: 20080115
  Serious: Yes (Hospitalization)
  Sender: FDA-Public Use
  Company Number: THYM-11505

PATIENT
  Age: 30 Year
  Sex: Male
  Weight: 92.9874 kg

DRUGS (9)
  1. THYMOGLOBULIN [Suspect]
     Indication: APLASTIC ANAEMIA
     Dosage: 328 MG QD IV
     Route: 042
     Dates: start: 20070717, end: 20070721
  2. THYMOGLOBULIN [Suspect]
     Dosage: MERIEUX
  3. PREDNISONE TAB [Concomitant]
  4. MAGNESIUM OXIDE [Concomitant]
  5. OMEPRAZOLE [Concomitant]
  6. CYCLOSPORINE MODIFIED [Concomitant]
  7. DOCUSATE [Concomitant]
  8. PROCHLORPERAZINE [Concomitant]
  9. ESCITALOPRAM OXALATE [Concomitant]

REACTIONS (2)
  - MUSCLE SPASMS [None]
  - SERUM SICKNESS [None]
